FAERS Safety Report 9537056 (Version 1)
Quarter: 2013Q3

REPORT INFORMATION
  Report Type: Spontaneous
  Country: US (occurrence: US)
  Receive Date: 20130919
  Receipt Date: 20130919
  Transmission Date: 20140515
  Serious: No
  Sender: FDA-Public Use
  Company Number: US-PFIZER INC-2013269227

PATIENT
  Age: 57 Year
  Sex: Female
  Weight: 86.62 kg

DRUGS (5)
  1. NEURONTIN [Suspect]
     Indication: BACK PAIN
     Dosage: 600 MG, 3X/DAY
     Dates: start: 2013
  2. NEURONTIN [Suspect]
     Indication: MUSCLE SPASMS
  3. LYRICA [Suspect]
     Indication: BACK PAIN
     Dosage: 75 MG, 3X/DAY
     Dates: start: 2013, end: 2013
  4. LYRICA [Suspect]
     Indication: MUSCLE SPASMS
  5. OXYCODONE/PARACETAMOL [Concomitant]
     Indication: BACK PAIN
     Dosage: 10 MG, AS NEEDED

REACTIONS (3)
  - Off label use [Unknown]
  - Blood cholesterol increased [Unknown]
  - Drug ineffective [Unknown]
